FAERS Safety Report 6540184-2 (Version None)
Quarter: 2010Q1

REPORT INFORMATION
  Report Type: 
  Country: None (occurrence: None)
  Receive Date: 20100112
  Receipt Date: 20091228
  Transmission Date: 20100710
  Serious: Yes (Other)
  Sender: FDA-Public Use
  Company Number: AUR-APL-2009-01681

PATIENT
  Age: 74 Year
  Sex: Male

DRUGS (4)
  1. AMLODIPINE [Suspect]
     Dosage: 10MG, DAILY
  2. IMATINIB [Suspect]
     Indication: CHRONIC MYELOID LEUKAEMIA
     Dosage: 499-800MG, DAILY
  3. PERINDOPRIL ERBUMINE [Suspect]
     Dosage: 4MG DAILY
  4. ATORVASTATIN [Concomitant]

REACTIONS (11)
  - ANGIOEDEMA [None]
  - DRUG INTERACTION [None]
  - DRUG TOXICITY [None]
  - HYPOAESTHESIA [None]
  - INCORRECT DOSE ADMINISTERED [None]
  - MEDICATION ERROR [None]
  - NAUSEA [None]
  - NEURALGIA [None]
  - PAIN IN EXTREMITY [None]
  - PALPITATIONS [None]
  - PERIPHERAL SENSORIMOTOR NEUROPATHY [None]
